FAERS Safety Report 17890135 (Version 5)
Quarter: 2021Q3

REPORT INFORMATION
  Report Type: Spontaneous
  Country: PT (occurrence: PT)
  Receive Date: 20200612
  Receipt Date: 20210713
  Transmission Date: 20211014
  Serious: Yes (Hospitalization, Other)
  Sender: FDA-Public Use
  Company Number: PT-AUROBINDO-AUR-APL-2020-028076

PATIENT
  Age: 41 Year
  Sex: Female

DRUGS (5)
  1. FUROSEMIDE TABLETS [Suspect]
     Active Substance: FUROSEMIDE
     Indication: OEDEMA PERIPHERAL
     Dosage: 1 DOSAGE FORM, FOUR TIMES/DAY
     Route: 048
  2. PAROXETINE. [Concomitant]
     Active Substance: PAROXETINE
     Indication: DEPRESSION
     Dosage: 20 MILLIGRAM, ONCE A DAY
     Route: 065
  3. ESTAZOLAM. [Concomitant]
     Active Substance: ESTAZOLAM
     Indication: PRODUCT USED FOR UNKNOWN INDICATION
     Dosage: 2 MILLIGRAM, ONCE A DAY (PRN)
     Route: 065
  4. TRAZODONE [Concomitant]
     Active Substance: TRAZODONE HYDROCHLORIDE
     Indication: PRODUCT USED FOR UNKNOWN INDICATION
     Dosage: 150 MILLIGRAM
     Route: 065
  5. FUROSEMIDE TABLETS [Suspect]
     Active Substance: FUROSEMIDE
     Dosage: 4 DOSAGE FORM, ONCE A DAY
     Route: 048

REACTIONS (6)
  - Hypotension [Recovered/Resolved]
  - Job dissatisfaction [Unknown]
  - Impaired work ability [Unknown]
  - Drug ineffective [Unknown]
  - Anxiety [Unknown]
  - Insomnia [Unknown]
